FAERS Safety Report 7209188-0 (Version None)
Quarter: 2011Q1

REPORT INFORMATION
  Report Type: 
  Country: None (occurrence: None)
  Receive Date: 20110104
  Receipt Date: 20101215
  Transmission Date: 20110831
  Serious: Yes (Congenital Anomaly)
  Sender: FDA-Public Use
  Company Number: A0681629A

PATIENT
  Sex: Female
  Weight: 5.4 kg

DRUGS (6)
  1. CLARITIN [Concomitant]
  2. HEPARIN [Concomitant]
     Dates: start: 20030101, end: 20040101
  3. PRENATAL VITAMINS [Concomitant]
  4. PAXIL [Suspect]
     Indication: DEPRESSION
     Dosage: 20MG PER DAY
     Dates: start: 20020101, end: 20050101
  5. GLYBURIDE [Concomitant]
  6. AUGMENTIN '125' [Concomitant]
     Dates: start: 20031206, end: 20031201

REACTIONS (4)
  - VENTRICULAR SEPTAL DEFECT [None]
  - SPINAL DEFORMITY [None]
  - DRUG EXPOSURE DURING PREGNANCY [None]
  - ATRIAL SEPTAL DEFECT [None]
